FAERS Safety Report 6597176-7 (Version None)
Quarter: 2010Q1

REPORT INFORMATION
  Report Type: 
  Country: None (occurrence: None)
  Receive Date: 20100212
  Receipt Date: 20100129
  Transmission Date: 20100710
  Serious: Yes (Hospitalization)
  Sender: FDA-Public Use
  Company Number: 2009EN000310

PATIENT
  Age: 17 Year
  Sex: Male
  Weight: 66.4 kg

DRUGS (13)
  1. ONCASPAR [Suspect]
     Indication: ACUTE LYMPHOCYTIC LEUKAEMIA
     Dosage: 2500 IU*M2; ; IV, 4500 IU; X1; IV
     Route: 042
     Dates: start: 20091118, end: 20091118
  2. ONCASPAR [Suspect]
     Indication: ACUTE LYMPHOCYTIC LEUKAEMIA
     Dosage: 2500 IU*M2; ; IV, 4500 IU; X1; IV
     Route: 042
     Dates: start: 20090726
  3. METHOTREXATE [Suspect]
     Indication: ACUTE LYMPHOCYTIC LEUKAEMIA
     Dosage: 15 MG; ; INTH, 810 MG; ; IV
     Dates: end: 20091117
  4. METHOTREXATE [Suspect]
     Indication: ACUTE LYMPHOCYTIC LEUKAEMIA
     Dosage: 15 MG; ; INTH, 810 MG; ; IV
     Dates: end: 20091207
  5. VINCRISTINE [Suspect]
     Indication: ACUTE LYMPHOCYTIC LEUKAEMIA
     Dosage: 6 MG; ; IV
     Route: 042
     Dates: start: 20091117, end: 20091207
  6. BACTRIM [Suspect]
     Indication: DRUG USE FOR UNKNOWN INDICATION
  7. METHYLPREDNISOLONE [Suspect]
     Indication: ACUTE LYMPHOCYTIC LEUKAEMIA
  8. CEFEPIME [Suspect]
     Indication: DRUG USE FOR UNKNOWN INDICATION
  9. CYTARABINE [Concomitant]
  10. CYCLOPHOSPHAMIDE [Concomitant]
  11. MERCAPTOPURINE [Concomitant]
  12. DAUNORUBICIN [Concomitant]
  13. PREDNISONE [Concomitant]

REACTIONS (17)
  - ABDOMINAL PAIN LOWER [None]
  - BACK PAIN [None]
  - CONDITION AGGRAVATED [None]
  - HEADACHE [None]
  - HYPERBILIRUBINAEMIA [None]
  - HYPERGLYCAEMIA [None]
  - HYPERURICAEMIA [None]
  - HYPOALBUMINAEMIA [None]
  - HYPOCALCAEMIA [None]
  - INTERNATIONAL NORMALISED RATIO INCREASED [None]
  - NEUTROPHIL COUNT INCREASED [None]
  - OROPHARYNGEAL PAIN [None]
  - PHOTOPHOBIA [None]
  - PROTEINURIA [None]
  - PROTHROMBIN TIME PROLONGED [None]
  - PYREXIA [None]
  - RENAL FAILURE [None]
